FAERS Safety Report 8140099-2 (Version None)
Quarter: 2012Q1

REPORT INFORMATION
  Report Type: 
  Country: None (occurrence: None)
  Receive Date: 20120216
  Receipt Date: 20120206
  Transmission Date: 20120608
  Serious: Yes (Other)
  Sender: FDA-Public Use
  Company Number: JP-BRISTOL-MYERS SQUIBB COMPANY-16389967

PATIENT
  Age: 68 Year
  Sex: Male

DRUGS (5)
  1. METFORMIN HCL [Concomitant]
  2. ATELEC [Concomitant]
     Indication: HYPERTENSION
  3. GLUCOBAY [Concomitant]
  4. ACTOS [Concomitant]
  5. IRBESARTAN [Suspect]
     Indication: HYPERTENSION
     Route: 048
     Dates: start: 20100407

REACTIONS (1)
  - DIABETES MELLITUS [None]
